FAERS Safety Report 9792520 (Version 1)
Quarter: 2014Q1

REPORT INFORMATION
  Report Type: Spontaneous
  Country: US (occurrence: US)
  Receive Date: 20140102
  Receipt Date: 20140102
  Transmission Date: 20141002
  Serious: No
  Sender: FDA-Public Use
  Company Number: US-009507513-1401USA000170

PATIENT
  Age: 84 Year
  Sex: Male

DRUGS (3)
  1. NASONEX [Suspect]
     Indication: NASAL DISCOMFORT
     Dosage: 50 MICROGRAM/1 SPRAY IN RIGHT NOSTRIL, QD
     Route: 045
     Dates: start: 20131230
  2. ANTIMICROBIAL (UNSPECIFIED) [Concomitant]
  3. ADVAIR [Concomitant]

REACTIONS (2)
  - Rhinalgia [Not Recovered/Not Resolved]
  - Rhinorrhoea [Not Recovered/Not Resolved]
